FAERS Safety Report 7353336-9 (Version None)
Quarter: 2011Q1

REPORT INFORMATION
  Report Type: 
  Country: None (occurrence: None)
  Receive Date: 20110315
  Receipt Date: 20110310
  Transmission Date: 20110831
  Serious: Yes (Life-Threatening, Hospitalization)
  Sender: FDA-Public Use
  Company Number: ES-MERCK-1101ESP00003

PATIENT
  Age: 52 Year
  Sex: Male

DRUGS (6)
  1. MEROPENEM [Concomitant]
     Indication: INTERVERTEBRAL DISCITIS
     Route: 042
     Dates: start: 20101105, end: 20101213
  2. INVANZ [Suspect]
     Indication: INTERVERTEBRAL DISCITIS
     Route: 042
     Dates: start: 20101213, end: 20101226
  3. INVANZ [Suspect]
     Route: 042
     Dates: start: 20101226, end: 20101228
  4. INVANZ [Suspect]
     Indication: OSTEOMYELITIS
     Route: 042
     Dates: start: 20101213, end: 20101226
  5. INVANZ [Suspect]
     Route: 042
     Dates: start: 20101226, end: 20101228
  6. MEROPENEM [Concomitant]
     Indication: OSTEOMYELITIS
     Route: 042
     Dates: start: 20101105, end: 20101213

REACTIONS (5)
  - UNDERDOSE [None]
  - CONVULSION [None]
  - DELIRIUM [None]
  - MYOCLONUS [None]
  - ENCEPHALOPATHY [None]
